FAERS Safety Report 14382193 (Version 7)
Quarter: 2019Q1

REPORT INFORMATION
  Report Type: Spontaneous
  Country: US (occurrence: US)
  Receive Date: 20180112
  Receipt Date: 20190213
  Transmission Date: 20190417
  Serious: Yes (Other)
  Sender: FDA-Public Use
  Company Number: US-ACTELION-A-NJ2018-165704

PATIENT
  Age: 63 Year
  Sex: Female

DRUGS (11)
  1. ROSUVASTATIN. [Concomitant]
     Active Substance: ROSUVASTATIN
     Dosage: 5 MG, QD
     Dates: start: 2015
  2. CLARITIN [Concomitant]
     Active Substance: LORATADINE
     Dosage: 5 MG, PRN
  3. FUROSEMIDE. [Concomitant]
     Active Substance: FUROSEMIDE
     Dosage: 20 MG, QD
     Dates: start: 201705
  4. ASPIRIN. [Concomitant]
     Active Substance: ASPIRIN
     Dosage: 81 MG, QD
  5. OPSUMIT [Suspect]
     Active Substance: MACITENTAN
     Indication: PULMONARY HYPERTENSION
     Dosage: 10 MG, QD
     Route: 048
     Dates: start: 20171208
  6. PREDNISONE. [Concomitant]
     Active Substance: PREDNISONE
     Dosage: 10 MG, QD
     Dates: start: 201710
  7. ESTRADIOL. [Concomitant]
     Active Substance: ESTRADIOL
     Dosage: 10 MCG, Q2WEEK
     Dates: start: 2013
  8. BIOTIN [Concomitant]
     Active Substance: BIOTIN
  9. METRONIDAZOLE. [Concomitant]
     Active Substance: METRONIDAZOLE
     Dosage: 0.75 %, QD
  10. ELIQUIS [Concomitant]
     Active Substance: APIXABAN
     Dosage: 5 MG, QD
     Dates: start: 201706
  11. ZYRTEC [Concomitant]
     Active Substance: CETIRIZINE HYDROCHLORIDE
     Dosage: 10 MG, QD
     Dates: start: 201808

REACTIONS (10)
  - Tongue geographic [Recovered/Resolved]
  - Sinusitis [Not Recovered/Not Resolved]
  - Nasopharyngitis [Unknown]
  - Middle ear effusion [Recovered/Resolved]
  - Tongue erythema [Recovering/Resolving]
  - Deafness [Not Recovered/Not Resolved]
  - Ear infection [Unknown]
  - Device dislocation [Recovered/Resolved]
  - Condition aggravated [Recovering/Resolving]
  - Ear congestion [Not Recovered/Not Resolved]

NARRATIVE: CASE EVENT DATE: 2018
